FAERS Safety Report 8909904 (Version 1)
Quarter: 2012Q4

REPORT INFORMATION
  Report Type: 
  Country: BR (occurrence: BR)
  Receive Date: 20121115
  Receipt Date: 20121115
  Transmission Date: 20130627
  Serious: Yes (Hospitalization)
  Sender: FDA-Public Use
  Company Number: BR-PFIZER INC-2012284037

PATIENT
  Age: 79 Year
  Sex: Male

DRUGS (4)
  1. PREGABALIN [Suspect]
     Indication: PAIN
     Dosage: 75 mg, 2x/day
     Dates: start: 201210
  2. ATENOLOL [Concomitant]
     Indication: BLOOD PRESSURE HIGH
     Dosage: UNK
     Dates: start: 201207
  3. OMEPRAZOL [Concomitant]
     Indication: GASTRITIS
  4. TAMSULON [Concomitant]
     Indication: PROSTATIC DISORDER
     Dosage: UNK
     Dates: start: 201205

REACTIONS (1)
  - Intraneural cyst [Unknown]
